FAERS Safety Report 8379644-0 (Version None)
Quarter: 2012Q2

REPORT INFORMATION
  Report Type: 
  Country: None (occurrence: None)
  Receive Date: 20120523
  Receipt Date: 20120518
  Transmission Date: 20120825
  Serious: Yes (Death)
  Sender: FDA-Public Use
  Company Number: PHHY2012IN042626

PATIENT
  Age: 62 Year
  Sex: Male

DRUGS (3)
  1. RAMIPRIL [Concomitant]
     Indication: BLOOD PRESSURE
  2. SEBIVO [Suspect]
     Indication: HEPATITIS B
     Dosage: UNK
     Dates: start: 20090101
  3. TRAMADOL HYDROCHLORIDE [Concomitant]
     Indication: ANALGESIC THERAPY

REACTIONS (1)
  - DEATH [None]
